APPROVED DRUG PRODUCT: BOROFAIR
Active Ingredient: ACETIC ACID, GLACIAL; ALUMINUM ACETATE
Strength: 2%;0.79%
Dosage Form/Route: SOLUTION/DROPS;OTIC
Application: A088606 | Product #001
Applicant: PHARMAFAIR INC
Approved: Aug 21, 1985 | RLD: No | RS: No | Type: DISCN